FAERS Safety Report 7691649-1 (Version None)
Quarter: 2011Q3

REPORT INFORMATION
  Report Type: 
  Country: None (occurrence: None)
  Receive Date: 20110818
  Receipt Date: 20110810
  Transmission Date: 20111222
  Serious: Yes (Other)
  Sender: FDA-Public Use
  Company Number: US-B.I. PHARMACEUTICALS,INC./RIDGEFIELD-2011-BP-20024BP

PATIENT
  Age: 100 Year
  Sex: Female

DRUGS (5)
  1. MICARDIS [Suspect]
     Indication: HYPERTENSION
     Dosage: 40 MG
     Route: 048
     Dates: end: 20110401
  2. METOPROLOL SUCCINATE [Concomitant]
     Dosage: 50 MG
     Route: 048
     Dates: start: 20090518
  3. NORVASC [Concomitant]
     Dosage: 10 MG
     Route: 048
     Dates: start: 20090216
  4. LEVOTHYROXINE SODIUM [Concomitant]
     Dosage: 100 MCG
     Route: 048
     Dates: start: 20090518
  5. MICARDIS [Suspect]
     Indication: CARDIAC FAILURE CONGESTIVE

REACTIONS (1)
  - ANGIOEDEMA [None]
